FAERS Safety Report 10866397 (Version 1)
Quarter: 2015Q1

REPORT INFORMATION
  Report Type: Spontaneous
  Country: US (occurrence: None)
  Receive Date: 20150220
  Receipt Date: 20150220
  Transmission Date: 20150721
  Serious: Yes (Life-Threatening)
  Sender: FDA-Public Use
  Company Number: ONY-2015-001

PATIENT
  Age: 2 Day
  Sex: Female
  Weight: 1.11 kg

DRUGS (4)
  1. SALINE [Concomitant]
     Active Substance: SODIUM CHLORIDE
  2. INFASURF [Suspect]
     Active Substance: CALFACTANT
     Route: 037
  3. GENTAMICIN. [Concomitant]
     Active Substance: GENTAMICIN
  4. AMPICILLIN [Concomitant]
     Active Substance: AMPICILLIN

REACTIONS (1)
  - Endotracheal intubation complication [None]

NARRATIVE: CASE EVENT DATE: 20150212
